FAERS Safety Report 19751452 (Version 1)
Quarter: 2021Q3

REPORT INFORMATION
  Report Type: Spontaneous
  Country: US (occurrence: US)
  Receive Date: 20210827
  Receipt Date: 20210827
  Transmission Date: 20211014
  Serious: No
  Sender: FDA-Public Use
  Company Number: US-MAYNE PHARMA-2021MYN000272

PATIENT
  Sex: Female

DRUGS (1)
  1. FABIOR [Suspect]
     Active Substance: TAZAROTENE
     Indication: PRODUCT USED FOR UNKNOWN INDICATION
     Dosage: 50 MG, QD
     Route: 061
     Dates: start: 20210311, end: 20210312

REACTIONS (3)
  - Application site irritation [Unknown]
  - Application site erythema [Unknown]
  - Expired product administered [Unknown]

NARRATIVE: CASE EVENT DATE: 20210312
